FAERS Safety Report 7443100-4 (Version None)
Quarter: 2011Q2

REPORT INFORMATION
  Report Type: 
  Country: None (occurrence: None)
  Receive Date: 20110428
  Receipt Date: 20110418
  Transmission Date: 20111010
  Serious: Yes (Other)
  Sender: FDA-Public Use
  Company Number: US-ALLERGAN-1105440US

PATIENT
  Age: 84 Year
  Sex: Female

DRUGS (1)
  1. COMBIGAN[R] [Suspect]
     Indication: GLAUCOMA
     Dosage: 2 GTT, BID
     Route: 047
     Dates: start: 20101001, end: 20110315

REACTIONS (5)
  - VISUAL ACUITY REDUCED [None]
  - HYPERSENSITIVITY [None]
  - EYE PAIN [None]
  - EYE INFLAMMATION [None]
  - VISION BLURRED [None]
